FAERS Safety Report 6139274-8 (Version None)
Quarter: 2009Q2

REPORT INFORMATION
  Report Type: 
  Country: None (occurrence: None)
  Receive Date: 20090401
  Receipt Date: 20090330
  Transmission Date: 20091009
  Serious: Yes (Hospitalization, Other)
  Sender: FDA-Public Use
  Company Number: US-BRISTOL-MYERS SQUIBB COMPANY-14535389

PATIENT
  Age: 75 Year
  Sex: Male
  Weight: 87 kg

DRUGS (1)
  1. KENALOG-40 [Suspect]
     Indication: NECK PAIN
     Dosage: INJECTION GIVEN ON 6MAR09 AT 10AM
     Route: 008
     Dates: start: 20090306

REACTIONS (1)
  - MENINGITIS [None]
